FAERS Safety Report 4974841-6 (Version None)
Quarter: 2006Q1

REPORT INFORMATION
  Report Type: 
  Country: None (occurrence: None)
  Receive Date: 20060227
  Receipt Date: 20051122
  Transmission Date: 20060701
  Serious: Yes (Hospitalization)
  Sender: FDA-Public Use
  Company Number: 05P-163-0317975-00

PATIENT
  Age: 19 Year
  Sex: Female
  Weight: 74.8435 kg

DRUGS (9)
  1. VICODIN(HYDROCODONE /  ACERTAMINOPHEN (HYDROCODONE / ACETAMINOPHEN) [Suspect]
     Indication: INTENTIONAL OVERDOSE
     Dosage: PER ORAL
     Route: 048
     Dates: start: 20050323, end: 20050323
  2. AMITRIPTYLINE HCL [Suspect]
     Indication: INTENTIONAL OVERDOSE
     Dosage: PER ORAL
     Route: 048
     Dates: start: 20050323, end: 20050323
  3. FLUOXETINE HYDROCHLORIDE [Suspect]
     Indication: BULIMIA NERVOSA
     Dosage: PER ORAL
     Route: 048
     Dates: start: 20041201, end: 20050322
  4. FLUOXETINE HYDROCHLORIDE [Suspect]
     Indication: INTENTIONAL OVERDOSE
     Dosage: PER ORAL
     Route: 048
     Dates: start: 20041201, end: 20050322
  5. FLUOXETINE HYDROCHLORIDE [Suspect]
     Indication: BULIMIA NERVOSA
     Dosage: PER ORAL
     Route: 048
     Dates: start: 20050323, end: 20050323
  6. FLUOXETINE HYDROCHLORIDE [Suspect]
     Indication: INTENTIONAL OVERDOSE
     Dosage: PER ORAL
     Route: 048
     Dates: start: 20050323, end: 20050323
  7. FLUOXETINE HYDROCHLORIDE [Suspect]
     Indication: BULIMIA NERVOSA
     Dosage: PER ORAL
     Route: 048
     Dates: end: 20051001
  8. FLUOXETINE HYDROCHLORIDE [Suspect]
     Indication: INTENTIONAL OVERDOSE
     Dosage: PER ORAL
     Route: 048
     Dates: end: 20051001
  9. AMNESTEEM [Concomitant]

REACTIONS (1)
  - INTENTIONAL OVERDOSE [None]
